FAERS Safety Report 6133098-3 (Version None)
Quarter: 2009Q1

REPORT INFORMATION
  Report Type: 
  Country: None (occurrence: None)
  Receive Date: 20090326
  Receipt Date: 20090323
  Transmission Date: 20090719
  Serious: Yes (Hospitalization)
  Sender: FDA-Public Use
  Company Number: US-BIOGENIDEC-2009BI003129

PATIENT
  Age: 51 Year
  Sex: Female

DRUGS (2)
  1. TYSABRI [Suspect]
     Indication: MULTIPLE SCLEROSIS
     Route: 042
     Dates: start: 20061206, end: 20090101
  2. TYSABRI [Suspect]
     Route: 042
     Dates: start: 20090301

REACTIONS (5)
  - ABDOMINAL PAIN [None]
  - FAECALITH [None]
  - NASOPHARYNGITIS [None]
  - RENAL CYST [None]
  - SPLEEN DISORDER [None]
